FAERS Safety Report 13044651 (Version 1)
Quarter: 2016Q4

REPORT INFORMATION
  Report Type: Spontaneous
  Country: US (occurrence: US)
  Receive Date: 20161220
  Receipt Date: 20161220
  Transmission Date: 20170207
  Serious: Yes (Other)
  Sender: FDA-Public Use
  Company Number: US-ROCHE-1053644

PATIENT
  Age: 78 Year
  Sex: Female
  Weight: 174.34 kg

DRUGS (21)
  1. WARFARIN [Concomitant]
     Active Substance: WARFARIN
     Route: 065
     Dates: start: 20111020
  2. GLIPIZIDE. [Concomitant]
     Active Substance: GLIPIZIDE
     Route: 048
     Dates: start: 20120322
  3. CYANOCOBALAMIN. [Concomitant]
     Active Substance: CYANOCOBALAMIN
     Dosage: 1000 MCG/ML
     Route: 065
     Dates: start: 20120327
  4. METFORMIN [Concomitant]
     Active Substance: METFORMIN HYDROCHLORIDE
     Route: 048
     Dates: start: 20120322
  5. ZELBORAF [Suspect]
     Active Substance: VEMURAFENIB
     Indication: METASTATIC MALIGNANT MELANOMA
     Route: 048
     Dates: start: 20120322
  6. FISH OIL [Concomitant]
     Active Substance: FISH OIL
     Dosage: 1200 MG-144 MG-216 MG
     Route: 048
     Dates: start: 20120322
  7. FLAXSEED [Concomitant]
     Active Substance: FLAX SEED
     Route: 065
     Dates: start: 20120106
  8. MAGNESIUM CITRATE. [Concomitant]
     Active Substance: MAGNESIUM CITRATE
     Route: 048
     Dates: start: 20120322
  9. MELATONIN [Concomitant]
     Active Substance: MELATONIN
     Route: 048
     Dates: start: 20120322
  10. ASCORBIC ACID/BIOFLAVONOIDS/RUTIN [Concomitant]
     Dosage: 500 MG + 50 MG + 25 + 40 MG
     Route: 065
     Dates: start: 20120327
  11. THYROID [Concomitant]
     Active Substance: LEVOTHYROXINE\LIOTHYRONINE
     Route: 048
     Dates: start: 20120322
  12. ALPHA LIPOIC ACID [Concomitant]
     Active Substance: .ALPHA.-LIPOIC ACID
     Route: 048
     Dates: start: 20120322
  13. SPIRONOLACTONE. [Concomitant]
     Active Substance: SPIRONOLACTONE
     Route: 048
     Dates: start: 20120322
  14. WARFARIN [Concomitant]
     Active Substance: WARFARIN
     Route: 065
  15. GINKGO BILOBA [Concomitant]
     Active Substance: GINKGO
     Route: 048
     Dates: start: 20120322
  16. VITAMIN A [Concomitant]
     Active Substance: VITAMIN A
     Dosage: 10000 UNIT CAP
     Route: 048
     Dates: start: 20120327
  17. BENADRYL [Concomitant]
     Active Substance: DIPHENHYDRAMINE HYDROCHLORIDE
     Route: 065
     Dates: start: 20120403
  18. ZELBORAF [Suspect]
     Active Substance: VEMURAFENIB
     Route: 048
     Dates: start: 20120310
  19. PROCHLORPERAZINE. [Concomitant]
     Active Substance: PROCHLORPERAZINE
     Indication: NAUSEA
     Route: 065
     Dates: start: 20120427
  20. METOPROLOL TARTRATE. [Concomitant]
     Active Substance: METOPROLOL TARTRATE
     Route: 048
     Dates: start: 20120327
  21. CELEBREX [Concomitant]
     Active Substance: CELECOXIB
     Dosage: 60 CAPSULE, PRN FOR PAIN
     Route: 048
     Dates: start: 20120501

REACTIONS (8)
  - Dysphagia [Unknown]
  - Skin papilloma [Not Recovered/Not Resolved]
  - Swelling [Unknown]
  - Fatigue [Unknown]
  - Vision blurred [Unknown]
  - Rash [Recovered/Resolved]
  - Flushing [Unknown]
  - Arthralgia [Not Recovered/Not Resolved]

NARRATIVE: CASE EVENT DATE: 20120312
